FAERS Safety Report 6730077-X (Version None)
Quarter: 2010Q2

REPORT INFORMATION
  Report Type: 
  Country: None (occurrence: None)
  Receive Date: 20100513
  Receipt Date: 20100505
  Transmission Date: 20101027
  Serious: Yes (Other)
  Sender: FDA-Public Use
  Company Number: 2010SP019826

PATIENT
  Age: 26 Year
  Sex: Female
  Weight: 88.4514 kg

DRUGS (1)
  1. IMPLANON [Suspect]
     Indication: DRUG USE FOR UNKNOWN INDICATION
     Dosage: 1 DF
     Dates: start: 20080401, end: 20100401

REACTIONS (2)
  - CERVICAL DYSPLASIA [None]
  - VAGINAL HAEMORRHAGE [None]
